FAERS Safety Report 16030649 (Version 1)
Quarter: 2019Q2

REPORT INFORMATION
  Report Type: Spontaneous
  Country: US (occurrence: US)
  Receive Date: 20190304
  Receipt Date: 20190304
  Transmission Date: 20190711
  Serious: Yes (Hospitalization)
  Sender: FDA-Public Use
  Company Number: None

PATIENT
  Age: 57 Year
  Sex: Female

DRUGS (8)
  1. BOTOX [Suspect]
     Active Substance: ONABOTULINUMTOXINA
     Indication: TORTICOLLIS
     Dosage: ?          OTHER FREQUENCY:EVERY 10 WEEKS;?
     Route: 030
     Dates: start: 20180306
  2. SIMVASTATIN TABLETS [Concomitant]
     Active Substance: SIMVASTATIN
  3. GILENYA 0.5 CAPSULE [Concomitant]
     Dates: start: 20180307
  4. GABAPENTIN CAPSULES [Concomitant]
     Active Substance: GABAPENTIN
  5. SERTALINE TABLETS [Concomitant]
  6. MELOXICAM TABLETS [Concomitant]
     Active Substance: MELOXICAM
  7. FENTANYL TRANSDERMAL SYSTEM [Concomitant]
     Active Substance: FENTANYL
  8. AMPYRA 10MG TABLETS [Concomitant]
     Dates: start: 20171204

REACTIONS (4)
  - Depression [None]
  - Fatigue [None]
  - Condition aggravated [None]
  - Muscle spasms [None]

NARRATIVE: CASE EVENT DATE: 20190102
